FAERS Safety Report 8355377 (Version 2)
Quarter: 2013Q2

REPORT INFORMATION
  Report Type: Report from Study
  Country: JP (occurrence: JP)
  Receive Date: 20120126
  Receipt Date: 20130501
  Transmission Date: 20140414
  Serious: Yes (Hospitalization, Other)
  Sender: FDA-Public Use
  Company Number: JP-ASTELLAS-2012US000760

PATIENT
  Age: 78 Year
  Sex: Male
  Weight: 55 kg

DRUGS (26)
  1. ERLOTINIB TABLET [Suspect]
     Indication: ADENOCARCINOMA PANCREAS
     Dosage: 100 MG, UID/QD
     Route: 048
     Dates: start: 20110909, end: 20110916
  2. ERLOTINIB TABLET [Suspect]
     Dosage: 100 MG, UID/QD
     Route: 048
     Dates: start: 20111018, end: 20111116
  3. ERLOTINIB TABLET [Suspect]
     Dosage: 100 MG, UID/QD
     Route: 048
     Dates: start: 20111202, end: 20120223
  4. GEMCITABINE [Concomitant]
     Indication: ADENOCARCINOMA PANCREAS
     Dosage: UNK
     Route: 041
     Dates: start: 20110902, end: 20110916
  5. GEMCITABINE [Concomitant]
     Dosage: 800 MG/M2, UID/QD
     Route: 042
     Dates: start: 20111028, end: 20111028
  6. GEMCITABINE [Concomitant]
     Dosage: 800 MG/M2, UID/QD
     Route: 042
     Dates: start: 20111104, end: 20111104
  7. GEMCITABINE [Concomitant]
     Dosage: 800 MG/M2, UID/QD
     Route: 042
     Dates: start: 20111202, end: 20111202
  8. GEMCITABINE [Concomitant]
     Dosage: 800 MG/M2, UID/QD
     Route: 042
     Dates: start: 20111209, end: 20111209
  9. GEMCITABINE [Concomitant]
     Dosage: 800 MG/M2, UID/QD
     Route: 042
     Dates: start: 20111229, end: 20111229
  10. GEMCITABINE [Concomitant]
     Dosage: 800 MG/M2, UID/QD
     Route: 042
     Dates: start: 20120106, end: 20120106
  11. GEMCITABINE [Concomitant]
     Dosage: 800 MG/M2, UID/QD
     Route: 042
     Dates: start: 20120120, end: 20120120
  12. GEMCITABINE [Concomitant]
     Dosage: 800 MG/M2, UID/QD
     Route: 042
     Dates: start: 20120127, end: 20120127
  13. GEMCITABINE [Concomitant]
     Dosage: 800 MG/M2, UID/QD
     Route: 042
     Dates: start: 20120210, end: 20120210
  14. GEMCITABINE [Concomitant]
     Dosage: 800 MG/M2, UID/QD
     Route: 042
     Dates: start: 20120224, end: 20120224
  15. GEMCITABINE [Concomitant]
     Dosage: 800 MG/M2, UID/QD
     Route: 042
     Dates: start: 20120309, end: 20120309
  16. GEMCITABINE [Concomitant]
     Dosage: 800 MG/M2, UID/QD
     Route: 042
     Dates: start: 20120323
  17. MAINTATE [Concomitant]
     Indication: PRODUCT USED FOR UNKNOWN INDICATION
     Dosage: 10 MG, UID/QD
     Route: 048
     Dates: start: 20111028, end: 20120331
  18. OLMETEC [Concomitant]
     Indication: PRODUCT USED FOR UNKNOWN INDICATION
     Dosage: 40 MG, UID/QD
     Route: 048
     Dates: end: 20120331
  19. FLUITRAN [Concomitant]
     Indication: PRODUCT USED FOR UNKNOWN INDICATION
     Dosage: 4 MG, UID/QD
     Route: 048
     Dates: end: 20120105
  20. CONIEL [Concomitant]
     Indication: PRODUCT USED FOR UNKNOWN INDICATION
     Dosage: 8 MG, UID/QD
     Route: 048
     Dates: end: 20120105
  21. TAKEPRON [Concomitant]
     Indication: PRODUCT USED FOR UNKNOWN INDICATION
     Dosage: 15 MG, UID/QD
     Route: 048
     Dates: end: 20120331
  22. SELBEX [Concomitant]
     Indication: PRODUCT USED FOR UNKNOWN INDICATION
     Dosage: 1.5 G, UID/QD
     Route: 048
     Dates: end: 20120105
  23. SENNOSIDE [Concomitant]
     Indication: PRODUCT USED FOR UNKNOWN INDICATION
     Dosage: 36 MG, UID/QD
     Route: 048
     Dates: end: 20120105
  24. OXYCONTIN [Concomitant]
     Indication: PRODUCT USED FOR UNKNOWN INDICATION
     Dosage: 10 MG, UID/QD
     Route: 048
     Dates: start: 20110908, end: 20120331
  25. TOUGHMAC E [Concomitant]
     Indication: PRODUCT USED FOR UNKNOWN INDICATION
     Dosage: 3 DF, UID/QD
     Route: 048
     Dates: start: 20110913, end: 20120105
  26. MAGMITT [Concomitant]
     Indication: PRODUCT USED FOR UNKNOWN INDICATION
     Dosage: 990 MG, UID/QD
     Route: 048
     Dates: start: 20111011, end: 20120331

REACTIONS (4)
  - Rash [Recovered/Resolved]
  - Decreased appetite [Recovering/Resolving]
  - Cholangitis acute [Recovering/Resolving]
  - Pneumonia bacterial [Recovering/Resolving]
